FAERS Safety Report 6969259-0 (Version None)
Quarter: 2010Q3

REPORT INFORMATION
  Report Type: 
  Country: None (occurrence: None)
  Receive Date: 20100907
  Receipt Date: 20100825
  Transmission Date: 20110219
  Serious: Yes (Other)
  Sender: FDA-Public Use
  Company Number: JP-ELI_LILLY_AND_COMPANY-JP201008007748

PATIENT
  Age: 66 Year
  Sex: Female

DRUGS (1)
  1. ZYPREXA [Suspect]
     Indication: DEPRESSION
     Dosage: 10 MG, DAILY (1/D)
     Route: 048
     Dates: start: 20070101, end: 20090401

REACTIONS (4)
  - HYPOKINESIA [None]
  - MUSCLE RIGIDITY [None]
  - OFF LABEL USE [None]
  - RECTAL ULCER [None]
